FAERS Safety Report 12160243 (Version 2)
Quarter: 2016Q2

REPORT INFORMATION
  Report Type: Spontaneous
  Country: JP (occurrence: JP)
  Receive Date: 20160308
  Receipt Date: 20160415
  Transmission Date: 20160815
  Serious: Yes (Life-Threatening)
  Sender: FDA-Public Use
  Company Number: JP-GE HEALTHCARE MEDICAL DIAGNOSTICS-OMPQ-PR-1601S-0092

PATIENT
  Age: 58 Year
  Sex: Male
  Weight: 75 kg

DRUGS (14)
  1. OMNIPAQUE [Suspect]
     Active Substance: IOHEXOL
     Indication: MASS
     Route: 042
     Dates: start: 20160114, end: 20160114
  2. PREMINENT [Concomitant]
     Active Substance: HYDROCHLOROTHIAZIDE\LOSARTAN POTASSIUM
     Dates: end: 20160130
  3. CRESTOR [Concomitant]
     Active Substance: ROSUVASTATIN CALCIUM
     Dates: end: 20160130
  4. FESIN [Concomitant]
     Active Substance: IRON SUCROSE
     Dates: end: 20160130
  5. MIRCERA [Concomitant]
     Active Substance: METHOXY POLYETHYLENE GLYCOL-EPOETIN BETA
     Dates: end: 20160130
  6. NEXIUM [Concomitant]
     Active Substance: ESOMEPRAZOLE MAGNESIUM
     Dates: end: 20160130
  7. OMNIPAQUE [Suspect]
     Active Substance: IOHEXOL
     Indication: DIAGNOSTIC PROCEDURE
  8. ZETIA [Concomitant]
     Active Substance: EZETIMIBE
     Dates: end: 20160130
  9. EPADEL [Concomitant]
     Active Substance: ICOSAPENT
     Dates: end: 20160130
  10. GLYCEREB [Concomitant]
     Dates: end: 20160130
  11. FEBURIC [Concomitant]
     Active Substance: FEBUXOSTAT
     Dates: end: 20160130
  12. NESP [Concomitant]
     Active Substance: DARBEPOETIN ALFA
     Dates: end: 20160130
  13. ALESION [Concomitant]
     Active Substance: EPINASTINE HYDROCHLORIDE
     Dates: end: 20160130
  14. FOSRENOL [Concomitant]
     Active Substance: LANTHANUM CARBONATE
     Dates: end: 20160130

REACTIONS (5)
  - Eosinophilia [Unknown]
  - Aplastic anaemia [Recovering/Resolving]
  - Pyrexia [Recovered/Resolved]
  - Erythema [Unknown]
  - Pruritus [Unknown]

NARRATIVE: CASE EVENT DATE: 2016
